FAERS Safety Report 6219988-1 (Version None)
Quarter: 2009Q2

REPORT INFORMATION
  Report Type: 
  Country: None (occurrence: None)
  Receive Date: 20090609
  Receipt Date: 20090603
  Transmission Date: 20091009
  Serious: Yes (Other)
  Sender: FDA-Public Use
  Company Number: US-JNJFOC-20090601794

PATIENT
  Age: 28 Year
  Sex: Male
  Weight: 102.06 kg

DRUGS (2)
  1. PEPCID COMPLETE TROPICAL FRUIT FLAVOR [Suspect]
     Route: 048
  2. PEPCID COMPLETE TROPICAL FRUIT FLAVOR [Suspect]
     Indication: DYSPEPSIA
     Dosage: 4-10 CHEWABLE TABLETS AS NEEDED IN 24 HOURS
     Route: 048

REACTIONS (4)
  - HAEMATEMESIS [None]
  - INTENTIONAL DRUG MISUSE [None]
  - INTENTIONAL OVERDOSE [None]
  - VOMITING [None]
